FAERS Safety Report 9522640 (Version 2)
Quarter: 2013Q3

REPORT INFORMATION
  Report Type: Spontaneous
  Country: US (occurrence: US)
  Receive Date: 20130913
  Receipt Date: 20130925
  Transmission Date: 20140515
  Serious: Yes (Other)
  Sender: FDA-Public Use
  Company Number: US-PFIZER INC-2013254861

PATIENT
  Age: 53 Year
  Sex: Female

DRUGS (2)
  1. ARTHROTEC [Suspect]
     Dosage: 1 DF, TWICE DAILY
     Route: 048
     Dates: start: 2006
  2. LISINOPRIL W/HYDROCHLOROTHIAZIDE [Concomitant]
     Dosage: 1 DF, ONCE DAILY
     Route: 048

REACTIONS (2)
  - Upper limb fracture [Unknown]
  - Fall [Unknown]
